FAERS Safety Report 5456846-4 (Version None)
Quarter: 2007Q3

REPORT INFORMATION
  Report Type: 
  Country: None (occurrence: None)
  Receive Date: 20070918
  Receipt Date: 20061212
  Transmission Date: 20080115
  Serious: No
  Sender: FDA-Public Use
  Company Number: US-ASTRAZENECA-2006UW27380

PATIENT
  Age: 11510 Day
  Sex: Male
  Weight: 69.1 kg

DRUGS (10)
  1. SEROQUEL [Suspect]
     Indication: BIPOLAR I DISORDER
     Route: 048
     Dates: start: 20060627
  2. SEROQUEL [Suspect]
     Indication: MANIA
     Route: 048
     Dates: start: 20060627
  3. SEROQUEL [Suspect]
     Indication: INSOMNIA
     Route: 048
     Dates: start: 20060627
  4. SEROQUEL [Suspect]
     Route: 048
     Dates: start: 20060628
  5. SEROQUEL [Suspect]
     Route: 048
     Dates: start: 20060628
  6. SEROQUEL [Suspect]
     Route: 048
     Dates: start: 20060628
  7. SEROQUEL [Suspect]
     Route: 048
     Dates: start: 20060629, end: 20060702
  8. SEROQUEL [Suspect]
     Route: 048
     Dates: start: 20060629, end: 20060702
  9. SEROQUEL [Suspect]
     Route: 048
     Dates: start: 20060629, end: 20060702
  10. DEPAKOTE ER [Concomitant]
     Dates: start: 20060605

REACTIONS (2)
  - DYSPHAGIA [None]
  - SUFFOCATION FEELING [None]
